FAERS Safety Report 8081627-5 (Version None)
Quarter: 2012Q1

REPORT INFORMATION
  Report Type: 
  Country: None (occurrence: None)
  Receive Date: 20120130
  Receipt Date: 20120126
  Transmission Date: 20120608
  Serious: Yes (Hospitalization, Other)
  Sender: FDA-Public Use
  Company Number: SE-PFIZER INC-2011293946

PATIENT
  Age: 44 Year
  Sex: Female

DRUGS (1)
  1. SYNAREL [Suspect]
     Dosage: 200 UG, UNK

REACTIONS (1)
  - RESPIRATORY DISTRESS [None]
